FAERS Safety Report 23258958 (Version 1)
Quarter: 2023Q4

REPORT INFORMATION
  Report Type: Spontaneous
  Country: US (occurrence: US)
  Receive Date: 20231204
  Receipt Date: 20231204
  Transmission Date: 20240109
  Serious: Yes (Hospitalization, Other)
  Sender: FDA-Public Use
  Company Number: US-FreseniusKabi-FK202319537

PATIENT
  Age: 88 Year
  Sex: Male

DRUGS (3)
  1. PROTAMINE SULFATE [Suspect]
     Active Substance: PROTAMINE SULFATE
     Indication: Haemostasis
     Route: 051
  2. CANGRELOR [Concomitant]
     Active Substance: CANGRELOR
     Indication: Product used for unknown indication
  3. HEPARIN [Concomitant]
     Active Substance: HEPARIN SODIUM
     Indication: Product used for unknown indication
     Dosage: INTRAVENOUS

REACTIONS (2)
  - Thrombosis [Recovered/Resolved]
  - Peripheral ischaemia [Recovered/Resolved]
